FAERS Safety Report 7725124-2 (Version None)
Quarter: 2011Q3

REPORT INFORMATION
  Report Type: 
  Country: None (occurrence: None)
  Receive Date: 20110901
  Receipt Date: 20110829
  Transmission Date: 20111222
  Serious: Yes (Hospitalization)
  Sender: FDA-Public Use
  Company Number: US-GILEAD-2011-0043406

PATIENT
  Age: 82 Year
  Sex: Male

DRUGS (1)
  1. LETAIRIS [Suspect]
     Indication: PRODUCT USED FOR UNKNOWN INDICATION
     Route: 048
     Dates: start: 20101217

REACTIONS (5)
  - DEHYDRATION [None]
  - BLOOD POTASSIUM DECREASED [None]
  - NAUSEA [None]
  - WEIGHT DECREASED [None]
  - APHAGIA [None]
